FAERS Safety Report 21916626 (Version 1)
Quarter: 2023Q1

REPORT INFORMATION
  Report Type: Spontaneous
  Country: TR (occurrence: TR)
  Receive Date: 20230126
  Receipt Date: 20230126
  Transmission Date: 20230418
  Serious: Yes (Hospitalization)
  Sender: FDA-Public Use
  Company Number: TR-China IPSEN SC-2023-00998

PATIENT
  Age: 35 Year
  Sex: Female
  Weight: 70 kg

DRUGS (1)
  1. DYSPORT [Suspect]
     Active Substance: ABOBOTULINUMTOXINA
     Indication: Obesity
     Route: 065
     Dates: start: 20221224, end: 20221224

REACTIONS (3)
  - Diplopia [Not Recovered/Not Resolved]
  - Dysphonia [Recovering/Resolving]
  - Off label use [Unknown]
